FAERS Safety Report 12852058 (Version 1)
Quarter: 2016Q4

REPORT INFORMATION
  Report Type: Spontaneous
  Country: US (occurrence: US)
  Receive Date: 20161014
  Receipt Date: 20161014
  Transmission Date: 20170207
  Serious: Yes (Other)
  Sender: FDA-Public Use
  Company Number: None

PATIENT
  Age: 74 Year
  Sex: Male

DRUGS (15)
  1. ALLOPURINOL. [Concomitant]
     Active Substance: ALLOPURINOL
  2. LINZESS [Concomitant]
     Active Substance: LINACLOTIDE
  3. MAGNESIUM [Concomitant]
     Active Substance: MAGNESIUM
  4. NUPLAZID [Suspect]
     Active Substance: PIMAVANSERIN TARTRATE
     Indication: HALLUCINATION
     Route: 048
     Dates: start: 20160913
  5. LEVOTHYROXIN [Concomitant]
     Active Substance: LEVOTHYROXINE
  6. NUPLAZID [Suspect]
     Active Substance: PIMAVANSERIN TARTRATE
     Indication: DELUSION
     Route: 048
     Dates: start: 20160913
  7. COLACE [Concomitant]
     Active Substance: DOCUSATE SODIUM
  8. PORMEGRANATE [Concomitant]
  9. RUTIN [Concomitant]
     Active Substance: RUTIN
  10. NUPLAZID [Suspect]
     Active Substance: PIMAVANSERIN TARTRATE
     Indication: PARKINSON^S DISEASE
     Route: 048
     Dates: start: 20160913
  11. FISH OIL [Concomitant]
     Active Substance: FISH OIL
  12. SIMVASTATIN. [Concomitant]
     Active Substance: SIMVASTATIN
  13. COQ10 [Concomitant]
     Active Substance: UBIDECARENONE
  14. ARICEPT [Concomitant]
     Active Substance: DONEPEZIL HYDROCHLORIDE
  15. MULTIVITAMIN [Concomitant]
     Active Substance: VITAMINS

REACTIONS (1)
  - Gastrointestinal disorder [None]

NARRATIVE: CASE EVENT DATE: 20160913
